FAERS Safety Report 24372976 (Version 7)
Quarter: 2025Q3

REPORT INFORMATION
  Report Type: Report from Study
  Country: US (occurrence: US)
  Receive Date: 20240927
  Receipt Date: 20250829
  Transmission Date: 20251021
  Serious: Yes (Other)
  Sender: SUNOVION
  Company Number: US-SUMITOMO PHARMA SWITZERLAND GMBH-2024SPA003033

PATIENT
  Age: 77 Year
  Sex: Male

DRUGS (2)
  1. ORGOVYX [Suspect]
     Active Substance: RELUGOLIX
     Indication: Prostate cancer
     Dosage: 360 MG, SINGLE
     Route: 048
     Dates: start: 20240908, end: 20240908
  2. ORGOVYX [Suspect]
     Active Substance: RELUGOLIX
     Dosage: 120 MG, QD
     Route: 048
     Dates: start: 20240909

REACTIONS (8)
  - Atrial fibrillation [Unknown]
  - Cardiac device implantation [Unknown]
  - Nasopharyngitis [Unknown]
  - Antiandrogen therapy [Unknown]
  - Sleep disorder [Unknown]
  - Irritability [Unknown]
  - Fatigue [Unknown]
  - Asthenia [Unknown]
